FAERS Safety Report 15644171 (Version 1)
Quarter: 2018Q4

REPORT INFORMATION
  Report Type: Spontaneous
  Country: US (occurrence: US)
  Receive Date: 20181121
  Receipt Date: 20181121
  Transmission Date: 20190205
  Serious: Yes (Hospitalization)
  Sender: FDA-Public Use
  Company Number: US-PERRIGO-18US013052

PATIENT
  Age: 2 Year
  Sex: Male
  Weight: 89 kg

DRUGS (1)
  1. ACETAMINOPHEN. [Suspect]
     Active Substance: ACETAMINOPHEN
     Indication: NEURALGIA
     Dosage: 2000 MG, SINGLE
     Route: 048
     Dates: start: 20181111, end: 20181111

REACTIONS (5)
  - Fatigue [Recovered/Resolved]
  - Amnesia [Recovered/Resolved]
  - Cardio-respiratory arrest [Recovered/Resolved]
  - Incorrect dose administered [Recovered/Resolved]
  - Vomiting [Recovered/Resolved]

NARRATIVE: CASE EVENT DATE: 201811
